FAERS Safety Report 24040360 (Version 1)
Quarter: 2024Q3

REPORT INFORMATION
  Report Type: Spontaneous
  Country: US (occurrence: US)
  Receive Date: 20240702
  Receipt Date: 20240702
  Transmission Date: 20241016
  Serious: Yes (Life-Threatening, Hospitalization)
  Sender: MYLAN
  Company Number: US-MYLANLABS-2024M1060117

PATIENT
  Age: 76 Year
  Sex: Female

DRUGS (7)
  1. ALLOPURINOL [Suspect]
     Active Substance: ALLOPURINOL
     Indication: Gout
     Dosage: UNK
     Route: 065
  2. CYCLOSPORINE [Suspect]
     Active Substance: CYCLOSPORINE
     Indication: Stevens-Johnson syndrome
     Dosage: UNK
     Route: 065
  3. CYCLOSPORINE [Suspect]
     Active Substance: CYCLOSPORINE
     Indication: Toxic epidermal necrolysis
  4. ETANERCEPT [Concomitant]
     Active Substance: ETANERCEPT
     Indication: Stevens-Johnson syndrome
     Dosage: UNK
     Route: 065
  5. ETANERCEPT [Concomitant]
     Active Substance: ETANERCEPT
     Indication: Toxic epidermal necrolysis
  6. Immunoglobulin [Concomitant]
     Indication: Stevens-Johnson syndrome
     Dosage: UNK
     Route: 042
  7. Immunoglobulin [Concomitant]
     Indication: Toxic epidermal necrolysis

REACTIONS (9)
  - Stevens-Johnson syndrome [Unknown]
  - Toxic epidermal necrolysis [Unknown]
  - Drug ineffective for unapproved indication [Unknown]
  - Renal failure [Unknown]
  - Liver injury [Unknown]
  - Shock [Unknown]
  - Respiratory failure [Unknown]
  - Multiple organ dysfunction syndrome [Unknown]
  - Off label use [Unknown]
